FAERS Safety Report 20074034 (Version 1)
Quarter: 2021Q4

REPORT INFORMATION
  Report Type: Spontaneous
  Country: CA (occurrence: CA)
  Receive Date: 20211116
  Receipt Date: 20211116
  Transmission Date: 20220303
  Serious: Yes (Hospitalization, Other)
  Sender: FDA-Public Use
  Company Number: CA-TEVA-2021-CA-1976413

PATIENT
  Age: 78 Year
  Sex: Male

DRUGS (17)
  1. PREDNISONE [Suspect]
     Active Substance: PREDNISONE
     Route: 065
  2. PREDNISONE [Suspect]
     Active Substance: PREDNISONE
     Route: 065
     Dates: start: 202107
  3. PREDNISONE [Suspect]
     Active Substance: PREDNISONE
     Dosage: 40 MILLIGRAM DAILY;
     Route: 065
  4. PREDNISONE [Suspect]
     Active Substance: PREDNISONE
     Route: 065
  5. XELJANZ [Suspect]
     Active Substance: TOFACITINIB CITRATE
     Indication: Colitis ulcerative
     Dosage: 20 MILLIGRAM DAILY;
     Route: 048
     Dates: start: 20200813, end: 202107
  6. XELJANZ [Suspect]
     Active Substance: TOFACITINIB CITRATE
     Dosage: 20 MILLIGRAM DAILY;
     Route: 048
     Dates: start: 202107, end: 202107
  7. MESALAMINE [Suspect]
     Active Substance: MESALAMINE
     Route: 065
  8. MESALAMINE [Suspect]
     Active Substance: MESALAMINE
     Route: 065
  9. TYLENOL [Concomitant]
     Active Substance: ACETAMINOPHEN
     Indication: Back pain
     Dosage: THERAPY ONGOING
     Route: 065
  10. TYLENOL [Concomitant]
     Active Substance: ACETAMINOPHEN
     Dosage: 8 DOSAGE FORMS DAILY;
     Route: 065
  11. AMLODIPINE [Concomitant]
     Active Substance: AMLODIPINE BESYLATE
     Dosage: THERAPY ONGOING
     Route: 065
  12. ENTYVIO [Concomitant]
     Active Substance: VEDOLIZUMAB
     Dosage: THERAPY ONGOING
     Route: 065
  13. CANDESARTAN [Concomitant]
     Active Substance: CANDESARTAN
     Dosage: THERAPY ONGOING
     Route: 065
  14. CALCIUM/ VITAMIN D [Concomitant]
     Dosage: THERAPY ONGOING
     Route: 065
  15. ROSUVASTATIN [Concomitant]
     Active Substance: ROSUVASTATIN
     Dosage: THERAPY ONGOING
     Route: 065
  16. CORTISONE [Concomitant]
     Active Substance: CORTISONE
     Dosage: 6 DOSAGE FORMS DAILY;
     Route: 065
  17. CORTISONE [Concomitant]
     Active Substance: CORTISONE
     Dosage: 5 DOSAGE FORMS DAILY;
     Route: 065

REACTIONS (12)
  - Clostridium difficile infection [Unknown]
  - Type 2 diabetes mellitus [Unknown]
  - Diarrhoea [Unknown]
  - Frequent bowel movements [Recovered/Resolved]
  - Flatulence [Unknown]
  - Abdominal discomfort [Unknown]
  - Fatigue [Unknown]
  - Heart rate increased [Unknown]
  - Constipation [Unknown]
  - Back pain [Unknown]
  - Depression [Unknown]
  - Abnormal faeces [Unknown]

NARRATIVE: CASE EVENT DATE: 20200101
